FAERS Safety Report 10491098 (Version 1)
Quarter: 2014Q4

REPORT INFORMATION
  Report Type: Spontaneous
  Country: US (occurrence: US)
  Receive Date: 20141002
  Receipt Date: 20141002
  Transmission Date: 20150528
  Serious: No
  Sender: FDA-Public Use
  Company Number: US-GLAXOSMITHKLINE-A1047317A

PATIENT
  Age: 85 Year
  Sex: Female

DRUGS (5)
  1. METOPROLOL [Concomitant]
     Active Substance: METOPROLOL
  2. PREDNISONE. [Concomitant]
     Active Substance: PREDNISONE
  3. MVI [Concomitant]
     Active Substance: VITAMINS
  4. ADVAIR HFA [Suspect]
     Active Substance: FLUTICASONE PROPIONATE\SALMETEROL XINAFOATE
     Indication: BRONCHITIS CHRONIC
     Dosage: 1PUFF TWICE PER DAY
     Route: 055
     Dates: start: 2010
  5. BABY ASPIRIN [Concomitant]
     Active Substance: ASPIRIN

REACTIONS (3)
  - Dyspnoea [Unknown]
  - Product quality issue [Unknown]
  - Dyspnoea [Unknown]

NARRATIVE: CASE EVENT DATE: 20131019
